FAERS Safety Report 7180222-X (Version None)
Quarter: 2010Q4

REPORT INFORMATION
  Report Type: 
  Country: None (occurrence: None)
  Receive Date: 20101221
  Receipt Date: 20101214
  Transmission Date: 20110411
  Serious: Yes (Life-Threatening)
  Sender: FDA-Public Use
  Company Number: IT-JNJCH-2010025743

PATIENT
  Sex: Female

DRUGS (3)
  1. CETIRIZINE HCL [Suspect]
     Indication: HYPERSENSITIVITY
     Dosage: TEXT:10 MG
     Route: 048
     Dates: start: 20091203, end: 20091203
  2. IBUPROFEN [Suspect]
     Indication: HEADACHE
     Dosage: TEXT:A DOSAGE FORM
     Route: 048
     Dates: start: 20091203, end: 20091203
  3. ENAPREN [Concomitant]
     Indication: HYPERTENSION
     Dosage: TEXT:20 MG
     Route: 048

REACTIONS (3)
  - HEADACHE [None]
  - HYPERTENSION [None]
  - VISION BLURRED [None]
